FAERS Safety Report 8006962-8 (Version None)
Quarter: 2011Q4

REPORT INFORMATION
  Report Type: 
  Country: None (occurrence: None)
  Receive Date: 20111227
  Receipt Date: 20111222
  Transmission Date: 20120403
  Serious: Yes (Hospitalization)
  Sender: FDA-Public Use
  Company Number: DK-JNJFOC-20111100036

PATIENT
  Sex: Male
  Weight: 109 kg

DRUGS (15)
  1. VINCRISTINE [Suspect]
     Route: 042
     Dates: start: 20110811
  2. RITUXIMAB [Suspect]
     Indication: DIFFUSE LARGE B-CELL LYMPHOMA
     Route: 042
     Dates: start: 20110901
  3. RITUXIMAB [Suspect]
     Route: 042
     Dates: start: 20110811
  4. CYCLOPHOSPHAMIDE [Suspect]
     Route: 042
     Dates: start: 20110811
  5. NEUPOGEN [Suspect]
     Indication: DIFFUSE LARGE B-CELL LYMPHOMA
     Route: 058
     Dates: start: 20110815
  6. PREDNISONE TAB [Suspect]
     Indication: DIFFUSE LARGE B-CELL LYMPHOMA
     Route: 048
     Dates: start: 20110811
  7. VINCRISTINE [Suspect]
     Indication: DIFFUSE LARGE B-CELL LYMPHOMA
     Route: 042
     Dates: start: 20110901
  8. SULFAMETHOXAZOLE [Concomitant]
     Indication: PROPHYLAXIS
     Route: 048
     Dates: start: 20110812
  9. CYCLOPHOSPHAMIDE [Suspect]
     Indication: DIFFUSE LARGE B-CELL LYMPHOMA
     Route: 042
     Dates: start: 20110901
  10. NEUPOGEN [Suspect]
     Route: 058
     Dates: start: 20110904
  11. DOXORUBICIN HCL [Suspect]
     Indication: DIFFUSE LARGE B-CELL LYMPHOMA
     Route: 042
     Dates: start: 20110901
  12. DOXORUBICIN HCL [Suspect]
     Route: 042
     Dates: start: 20110811
  13. PREDNISONE TAB [Suspect]
     Route: 042
     Dates: start: 20110901
  14. CIPROFLOXACIN [Concomitant]
     Indication: PROPHYLAXIS
     Route: 048
     Dates: start: 20110818
  15. ALL OTHER THERAPEUTIC PRODUCTS [Concomitant]
     Indication: PRODUCT USED FOR UNKNOWN INDICATION
     Route: 048
     Dates: start: 20110818

REACTIONS (2)
  - ERYSIPELAS [None]
  - PNEUMONIA [None]
